FAERS Safety Report 25126453 (Version 1)
Quarter: 2025Q1

REPORT INFORMATION
  Report Type: Spontaneous
  Country: US (occurrence: US)
  Receive Date: 20250327
  Receipt Date: 20250327
  Transmission Date: 20250409
  Serious: Yes (Hospitalization, Other)
  Sender: EMCURE PHARMACEUTICALS LTD
  Company Number: US-AVET LIFESCIENCES LTD-2025-AVET-000081

PATIENT
  Age: 43 Year
  Sex: Female

DRUGS (5)
  1. DIPHENHYDRAMINE HYDROCHLORIDE [Interacting]
     Active Substance: DIPHENHYDRAMINE HYDROCHLORIDE
     Indication: Insomnia
  2. ASENAPINE [Interacting]
     Active Substance: ASENAPINE
     Indication: Mood swings
  3. TRAZODONE [Interacting]
     Active Substance: TRAZODONE HYDROCHLORIDE
     Indication: Insomnia
  4. DULOXETINE [Interacting]
     Active Substance: DULOXETINE
     Indication: Anxiety
  5. DULOXETINE [Interacting]
     Active Substance: DULOXETINE
     Indication: Depression

REACTIONS (5)
  - Drug abuse [Unknown]
  - Drug interaction [Unknown]
  - Serotonin syndrome [Recovering/Resolving]
  - Lactic acidosis [Unknown]
  - Leukocytosis [Unknown]
